FAERS Safety Report 5710503-5 (Version None)
Quarter: 2008Q2

REPORT INFORMATION
  Report Type: 
  Country: None (occurrence: None)
  Receive Date: 20080414
  Receipt Date: 20080407
  Transmission Date: 20081010
  Serious: Yes (Life-Threatening, Hospitalization)
  Sender: FDA-Public Use
  Company Number: FABR-1000184

PATIENT
  Age: 59 Year
  Sex: Female
  Weight: 70 kg

DRUGS (1)
  1. FABRAZYME [Suspect]
     Indication: FABRY'S DISEASE
     Dosage: 70 MG, Q2W; INTRAVENOUS
     Route: 042
     Dates: start: 20061201, end: 20071227

REACTIONS (2)
  - BIPOLAR DISORDER [None]
  - CEREBROVASCULAR ACCIDENT [None]
